FAERS Safety Report 18589735 (Version 1)
Quarter: 2020Q4

REPORT INFORMATION
  Report Type: Spontaneous
  Country: US (occurrence: US)
  Receive Date: 20201204
  Receipt Date: 20201204
  Transmission Date: 20210114
  Serious: Yes (Other)
  Sender: FDA-Public Use
  Company Number: None

PATIENT
  Age: 29 Year
  Sex: Male

DRUGS (2)
  1. VALPROIC ACID ER 500MG [Suspect]
     Active Substance: VALPROIC ACID
     Indication: IMPULSE-CONTROL DISORDER
     Route: 048
  2. VALPROIC ACID ER 500MG [Suspect]
     Active Substance: VALPROIC ACID
     Indication: AFFECTIVE DISORDER
     Route: 048

REACTIONS (2)
  - Agitation [None]
  - Product substitution issue [None]
